FAERS Safety Report 19168294 (Version 1)
Quarter: 2021Q2

REPORT INFORMATION
  Report Type: Spontaneous
  Country: US (occurrence: US)
  Receive Date: 20210421
  Receipt Date: 20210421
  Transmission Date: 20210717
  Serious: Yes (Hospitalization)
  Sender: FDA-Public Use
  Company Number: None

PATIENT
  Age: 49 Year
  Sex: Male

DRUGS (1)
  1. TALTZ [Suspect]
     Active Substance: IXEKIZUMAB
     Indication: PSORIASIS
     Dosage: ?          OTHER FREQUENCY:WEEKS 4,6,8,10;?
     Route: 058
     Dates: start: 20201203

REACTIONS (2)
  - Appendicectomy [None]
  - Therapy interrupted [None]

NARRATIVE: CASE EVENT DATE: 20210319
